FAERS Safety Report 18763626 (Version 1)
Quarter: 2021Q1

REPORT INFORMATION
  Report Type: Spontaneous
  Country: US (occurrence: US)
  Receive Date: 20210120
  Receipt Date: 20210120
  Transmission Date: 20210419
  Serious: Yes (Hospitalization)
  Sender: FDA-Public Use
  Company Number: US-ACELLA PHARMACEUTICALS, LLC-2105588

PATIENT
  Age: 1 Day
  Sex: Female
  Weight: 3.81 kg

DRUGS (7)
  1. INSULIN [Suspect]
     Active Substance: INSULIN NOS
     Route: 065
  2. QUETIAPINE. [Suspect]
     Active Substance: QUETIAPINE
     Route: 065
  3. HYDROCODONE BITARTRATE AND CHLORPHENIRAMINE MALEATE [Suspect]
     Active Substance: CHLORPHENIRAMINE MALEATE\HYDROCODONE BITARTRATE
     Indication: PRODUCT USED FOR UNKNOWN INDICATION
     Route: 065
  4. ACETAMINOPHEN. [Suspect]
     Active Substance: ACETAMINOPHEN
     Route: 065
  5. ALBUTEROL. [Suspect]
     Active Substance: ALBUTEROL
     Route: 055
  6. ACETAZOLAMIDE. [Suspect]
     Active Substance: ACETAZOLAMIDE
     Route: 065
  7. SERTRALINE [Suspect]
     Active Substance: SERTRALINE HYDROCHLORIDE
     Route: 065

REACTIONS (1)
  - Metabolic acidosis [Recovered/Resolved]
